FAERS Safety Report 20171609 (Version 1)
Quarter: 2021Q4

REPORT INFORMATION
  Report Type: Spontaneous
  Country: US (occurrence: None)
  Receive Date: 20211210
  Receipt Date: 20211210
  Transmission Date: 20220303
  Serious: Yes (Death, Hospitalization)
  Sender: FDA-Public Use
  Company Number: None

PATIENT
  Age: 57 Year
  Sex: Male
  Weight: 110 kg

DRUGS (1)
  1. TOCILIZUMAB [Suspect]
     Active Substance: TOCILIZUMAB
     Indication: COVID-19
     Dosage: FREQUENCY : ONCE;?
     Route: 040
     Dates: start: 20211117, end: 20211117

REACTIONS (10)
  - Septic shock [None]
  - Pneumonia klebsiella [None]
  - Acute kidney injury [None]
  - Candida sepsis [None]
  - Atrial fibrillation [None]
  - Gastric pneumatosis [None]
  - Intestinal ischaemia [None]
  - Blood lactic acid increased [None]
  - Haemofiltration [None]
  - Haemofiltration [None]

NARRATIVE: CASE EVENT DATE: 20211207
